FAERS Safety Report 17284440 (Version 2)
Quarter: 2020Q1

REPORT INFORMATION
  Report Type: Report from Study
  Country: CO (occurrence: CO)
  Receive Date: 20200117
  Receipt Date: 20200220
  Transmission Date: 20200409
  Serious: Yes (Hospitalization)
  Sender: FDA-Public Use
  Company Number: CO-BAYER-2019-153154

PATIENT
  Age: 63 Year
  Sex: Female

DRUGS (7)
  1. ADEMPAS [Suspect]
     Active Substance: RIOCIGUAT
     Indication: PULMONARY HYPERTENSION
     Dosage: 0.5 MG, Q8HR
     Dates: start: 20190906
  2. FUROSEMIDE. [Concomitant]
     Active Substance: FUROSEMIDE
     Indication: FLUID RETENTION
     Dosage: UNK
  3. NEBIVOLOL. [Concomitant]
     Active Substance: NEBIVOLOL
     Indication: PULMONARY HYPERTENSION
     Dosage: UNK
  4. ADEMPAS [Suspect]
     Active Substance: RIOCIGUAT
     Indication: PULMONARY HYPERTENSION
     Dosage: 1.0 MG, Q8HR
     Dates: start: 20190812, end: 20190813
  5. ADEMPAS [Suspect]
     Active Substance: RIOCIGUAT
     Indication: PULMONARY HYPERTENSION
     Dosage: UNK
  6. HEPARIN [Concomitant]
     Active Substance: HEPARIN SODIUM
  7. ENOXAPARIN [Concomitant]
     Active Substance: ENOXAPARIN
     Dosage: UNK

REACTIONS (10)
  - Endarterectomy [Recovered/Resolved]
  - Peripheral swelling [None]
  - Headache [Recovered/Resolved]
  - Peripheral swelling [Recovered/Resolved]
  - Wrong technique in product usage process [None]
  - Incorrect dose administered [Recovered/Resolved]
  - Respiratory distress [None]
  - Tracheostomy [Recovered/Resolved]
  - Product supply issue [None]
  - Product prescribing issue [None]

NARRATIVE: CASE EVENT DATE: 2019
